FAERS Safety Report 15387004 (Version 1)
Quarter: 2018Q3

REPORT INFORMATION
  Report Type: Spontaneous
  Country: JP (occurrence: JP)
  Receive Date: 20180914
  Receipt Date: 20180914
  Transmission Date: 20181010
  Serious: Yes (Other)
  Sender: FDA-Public Use
  Company Number: JP-SHIRE-JP201835156AA

PATIENT
  Age: 82 Year
  Sex: Female

DRUGS (1)
  1. AGRYLIN [Suspect]
     Active Substance: ANAGRELIDE HYDROCHLORIDE
     Indication: ESSENTIAL THROMBOCYTHAEMIA
     Dosage: 1.0 MG, 2X/DAY:BID
     Route: 048
     Dates: start: 201803

REACTIONS (1)
  - Vein disorder [Recovering/Resolving]

NARRATIVE: CASE EVENT DATE: 20180704
